FAERS Safety Report 6879037-9 (Version None)
Quarter: 2010Q3

REPORT INFORMATION
  Report Type: 
  Country: None (occurrence: None)
  Receive Date: 20100728
  Receipt Date: 20100713
  Transmission Date: 20110219
  Serious: Yes (Other)
  Sender: FDA-Public Use
  Company Number: PHHY2010TH45278

PATIENT
  Sex: Female

DRUGS (3)
  1. ZOMETA [Suspect]
     Dosage: UNK
     Dates: start: 20030101, end: 20100201
  2. ZOMETA [Suspect]
     Dosage: 4 MG, MONTHLY
     Dates: start: 20030101
  3. FEMARA [Suspect]
     Dosage: UNK
     Dates: start: 20020101, end: 20100201

REACTIONS (2)
  - FALL [None]
  - FEMUR FRACTURE [None]
